FAERS Safety Report 14779859 (Version 5)
Quarter: 2018Q3

REPORT INFORMATION
  Report Type: Report from Study
  Country: None (occurrence: TR)
  Receive Date: 20180419
  Receipt Date: 20180722
  Transmission Date: 20181010
  Serious: Yes (Hospitalization)
  Sender: FDA-Public Use
  Company Number: TR-ABBVIE-18K-161-2328449-00

PATIENT
  Age: 55 Year
  Sex: Male
  Weight: 70 kg

DRUGS (24)
  1. BEMIKS [Concomitant]
     Indication: VITAMIN SUPPLEMENTATION
     Dosage: ONE IN TWO
     Route: 042
     Dates: start: 20180510
  2. ECOPIRIN [Concomitant]
     Active Substance: ASPIRIN
     Indication: ANTICOAGULANT THERAPY
     Route: 048
     Dates: start: 20180419
  3. DIAFORMIN [Concomitant]
     Active Substance: METFORMIN HYDROCHLORIDE
     Indication: DIABETES MELLITUS
     Route: 048
     Dates: start: 2010, end: 20180510
  4. BELOC ZOK [Concomitant]
     Active Substance: METOPROLOL SUCCINATE
     Indication: HYPERTENSION
     Route: 048
     Dates: start: 2012
  5. MOTILIUM [Concomitant]
     Active Substance: DOMPERIDONE
     Indication: DYSPEPSIA
     Route: 048
     Dates: start: 2015
  6. GLUCOPHAGE [Concomitant]
     Active Substance: METFORMIN HYDROCHLORIDE
     Indication: DIABETES MELLITUS
     Route: 048
     Dates: start: 20180510
  7. JEVITY PLUS [Concomitant]
     Indication: NUTRITIONAL SUPPLEMENTATION
     Dosage: 1.5 KCAL/ML, 4 HOURS NUTRITION, 1 HOUR BREAK?20 CC / HOUR
     Route: 050
     Dates: start: 20180510
  8. DUODOPA [Suspect]
     Active Substance: CARBIDOPA\LEVODOPA
     Indication: PARKINSON^S DISEASE
     Dosage: MORNING DOSE: 0.00 ML??CONTINUOUS DOSE: 7.30 ML??EXTRA DOSE: 2.50 ML
     Route: 050
     Dates: start: 20170614, end: 20180424
  9. ULTROX [Concomitant]
     Indication: BLOOD CHOLESTEROL
     Route: 048
     Dates: start: 2012
  10. MICTONORM [Concomitant]
     Active Substance: PROPIVERINE HYDROCHLORIDE
     Indication: PROSTATIC DISORDER
     Route: 048
     Dates: start: 20180105, end: 20180510
  11. UROREC [Concomitant]
     Active Substance: SILODOSIN
     Indication: PROSTATIC DISORDER
     Route: 048
     Dates: start: 20180105
  12. CITOLES [Concomitant]
     Indication: PARKINSON^S DISEASE
     Route: 048
     Dates: start: 20180510
  13. UROREC [Concomitant]
     Active Substance: SILODOSIN
     Indication: PRODUCT USED FOR UNKNOWN INDICATION
     Dates: end: 20180510
  14. LYRICA [Concomitant]
     Active Substance: PREGABALIN
     Indication: PARKINSON^S DISEASE
     Route: 048
     Dates: start: 20180510
  15. POLIVIT C [Concomitant]
     Indication: VITAMIN SUPPLEMENTATION
     Route: 048
     Dates: start: 20170614, end: 20180510
  16. CIPRALEX [Concomitant]
     Active Substance: ESCITALOPRAM OXALATE
     Indication: PARKINSON^S DISEASE
     Route: 048
     Dates: start: 2015, end: 20180510
  17. APO GO [Concomitant]
     Indication: PARKINSON^S DISEASE
     Route: 058
     Dates: start: 20180510
  18. ZESTAL [Concomitant]
     Indication: PARKINSON^S DISEASE
     Route: 048
     Dates: start: 2016, end: 20180510
  19. MODET [Concomitant]
     Indication: HYPERTENSION
     Route: 048
     Dates: start: 20180105, end: 20180510
  20. BEKUNIS [Concomitant]
     Indication: CONSTIPATION
     Route: 048
     Dates: start: 20180510
  21. FOLBIOL [Concomitant]
     Active Substance: FOLIC ACID
     Indication: VITAMIN SUPPLEMENTATION
     Route: 048
     Dates: start: 20180510
  22. DIAMICRON [Concomitant]
     Active Substance: GLICLAZIDE
     Indication: DIABETES MELLITUS
     Route: 048
     Dates: start: 20180510
  23. PULCET [Concomitant]
     Active Substance: PANTOPRAZOLE SODIUM
     Indication: PROPHYLAXIS
     Route: 048
     Dates: start: 20180419
  24. SINEMET [Concomitant]
     Active Substance: CARBIDOPA\LEVODOPA
     Indication: PARKINSON^S DISEASE
     Route: 048
     Dates: start: 20180424, end: 20180510

REACTIONS (1)
  - Guillain-Barre syndrome [Recovered/Resolved]

NARRATIVE: CASE EVENT DATE: 20180418
